FAERS Safety Report 8890371 (Version 19)
Quarter: 2014Q2

REPORT INFORMATION
  Report Type: Report from Study
  Country: CA (occurrence: CA)
  Receive Date: 20121107
  Receipt Date: 20140521
  Transmission Date: 20141212
  Serious: Yes (Hospitalization, Other)
  Sender: FDA-Public Use
  Company Number: PHHY2012CA100755

PATIENT
  Age: 37 Year
  Sex: Male

DRUGS (7)
  1. SANDOSTATIN LAR [Suspect]
     Indication: DIARRHOEA
     Dosage: 30 MG, QMO
     Route: 030
     Dates: start: 20121003
  2. SANDOSTATIN LAR [Suspect]
     Dosage: 30 MG, EVERY 4 WEEKS
     Route: 030
  3. SANDOSTATIN LAR [Suspect]
     Dosage: 30 MG, QMO
     Route: 030
  4. SANDOSTATIN LAR [Suspect]
     Dosage: 30 MG, EVERY 4 WEEKS
     Route: 030
  5. TYLENOL [Concomitant]
     Dosage: UNK UKN, PRN
  6. NORVASC [Concomitant]
     Dosage: 10 MG, TID
  7. VALSARTAN [Concomitant]
     Dosage: 100 MG, TID

REACTIONS (17)
  - Pyrexia [Unknown]
  - Campylobacter gastroenteritis [Recovered/Resolved]
  - Campylobacter infection [Recovered/Resolved]
  - Bacterial test positive [Unknown]
  - Gastrointestinal oedema [Unknown]
  - Dehydration [Unknown]
  - Nausea [Unknown]
  - Diarrhoea [Not Recovered/Not Resolved]
  - Crohn^s disease [Not Recovered/Not Resolved]
  - Nephrolithiasis [Unknown]
  - General physical health deterioration [Unknown]
  - Abdominal pain [Not Recovered/Not Resolved]
  - Haematochezia [Not Recovered/Not Resolved]
  - Night sweats [Unknown]
  - Hypophagia [Unknown]
  - Malaise [Unknown]
  - Vomiting [Recovering/Resolving]
